FAERS Safety Report 5299758-1 (Version None)
Quarter: 2007Q2

REPORT INFORMATION
  Report Type: 
  Country: None (occurrence: None)
  Receive Date: 20070417
  Receipt Date: 20070405
  Transmission Date: 20071010
  Serious: Yes (Other)
  Sender: FDA-Public Use
  Company Number: CA-PFIZER INC-2007015843

PATIENT
  Sex: Female

DRUGS (18)
  1. XALATAN [Suspect]
     Route: 047
  2. LISINOPRIL [Concomitant]
  3. ATENOLOL [Concomitant]
  4. PANTOPRAZOLE SODIUM [Concomitant]
  5. ZOCOR [Concomitant]
  6. METFORMIN HCL [Concomitant]
  7. ATARAX [Concomitant]
  8. PAXIL [Concomitant]
  9. SYNTHROID [Concomitant]
  10. PERCOCET [Concomitant]
  11. SALBUTAMOL [Concomitant]
  12. PULMICORT [Concomitant]
  13. DOMPERIDONE [Concomitant]
  14. NAPHAZOLINE HYDROCHLORIDE [Concomitant]
     Route: 047
  15. ACTOS [Concomitant]
  16. ALPHAGAN [Concomitant]
  17. OMEGA 3-6-9 [Concomitant]
  18. VITAMINS [Concomitant]

REACTIONS (2)
  - DIZZINESS [None]
  - HYPOTENSION [None]
